FAERS Safety Report 7274942-6 (Version None)
Quarter: 2011Q1

REPORT INFORMATION
  Report Type: 
  Country: None (occurrence: None)
  Receive Date: 20110204
  Receipt Date: 20110201
  Transmission Date: 20110831
  Serious: Yes (Death, Other)
  Sender: FDA-Public Use
  Company Number: US-AMGEN-USASP2010009517

PATIENT
  Age: 47 Year
  Sex: Female
  Weight: 60 kg

DRUGS (7)
  1. NPLATE [Suspect]
     Indication: MYELODYSPLASTIC SYNDROME
     Dosage: 300 A?G, UNK
     Route: 058
     Dates: start: 20100716, end: 20100730
  2. PROCHLORPERAZINE                   /00013302/ [Concomitant]
     Dosage: 10 MG, UNK
     Dates: start: 20100429, end: 20101129
  3. VICODIN [Concomitant]
     Dosage: 500 MG, UNK
     Dates: start: 20100625, end: 20101129
  4. AMICAR [Concomitant]
     Dosage: 1000 MG, QID
     Dates: start: 20100817, end: 20101214
  5. NPLATE [Suspect]
     Indication: OVARIAN CANCER
  6. IMMUNOGLOBULINS [Concomitant]
  7. CORTICOSTEROIDS [Concomitant]

REACTIONS (6)
  - PLATELET COUNT ABNORMAL [None]
  - DEATH [None]
  - METASTASES TO CENTRAL NERVOUS SYSTEM [None]
  - EPISTAXIS [None]
  - DRUG INEFFECTIVE [None]
  - OVARIAN CANCER METASTATIC [None]
